FAERS Safety Report 5087184-X (Version None)
Quarter: 2006Q3

REPORT INFORMATION
  Report Type: 
  Country: None (occurrence: None)
  Receive Date: 20060821
  Receipt Date: 20060809
  Transmission Date: 20061208
  Serious: Yes (Death, Hospitalization)
  Sender: FDA-Public Use
  Company Number: 2006-04420

PATIENT
  Age: 26 Year
  Sex: Female

DRUGS (1)
  1. IBUPROFEN [Suspect]
     Dosage: 90-130 TABLETS ORAL
     Route: 048
     Dates: end: 20051201

REACTIONS (2)
  - DRUG TOXICITY [None]
  - METABOLIC ACIDOSIS [None]
